FAERS Safety Report 5276742-5 (Version None)
Quarter: 2007Q1

REPORT INFORMATION
  Report Type: 
  Country: None (occurrence: None)
  Receive Date: 20070327
  Receipt Date: 20070314
  Transmission Date: 20070707
  Serious: Yes (Hospitalization, Other)
  Sender: FDA-Public Use
  Company Number: PHBS2007JP04768

PATIENT
  Age: 30 Year
  Sex: Male

DRUGS (9)
  1. CYCLOSPORINE [Suspect]
     Indication: HEART TRANSPLANT
     Dosage: 300 MG/DAY
  2. CYCLOSPORINE [Suspect]
     Dosage: 360 MG/DAY
  3. CYCLOSPORINE [Suspect]
     Dosage: 380 MG/DAY
  4. CYCLOSPORINE [Suspect]
     Dosage: 420 MG/DAY
  5. MYCOPHENOLATE MOFETIL [Suspect]
     Indication: HEART TRANSPLANT
     Dosage: 2 G/DAY
  6. MYCOPHENOLATE MOFETIL [Suspect]
     Dosage: 1 G/DAY
  7. PREDNISOLONE [Suspect]
     Indication: HEART TRANSPLANT
     Dosage: 15 MG/DAY
  8. PREDNISOLONE [Suspect]
     Dosage: 20 MG/DAY
  9. PREDNISOLONE [Suspect]
     Dosage: 20 MG/DAY

REACTIONS (6)
  - BLOOD CREATININE INCREASED [None]
  - CYTOMEGALOVIRUS ANTIGEN POSITIVE [None]
  - CYTOMEGALOVIRUS INFECTION [None]
  - HEART TRANSPLANT REJECTION [None]
  - SPINAL COMPRESSION FRACTURE [None]
  - WHITE BLOOD CELL COUNT DECREASED [None]
